FAERS Safety Report 4505019-8 (Version None)
Quarter: 2004Q4

REPORT INFORMATION
  Report Type: 
  Country: None (occurrence: None)
  Receive Date: 20041116
  Receipt Date: 20041027
  Transmission Date: 20050328
  Serious: Yes (Death, Life-Threatening, Hospitalization)
  Sender: FDA-Public Use
  Company Number: DSA_25265_2004

PATIENT
  Age: 82 Year
  Sex: Female

DRUGS (9)
  1. ENALAPRIL MALEATE [Suspect]
     Dosage: 20 MG QD PO
     Route: 048
     Dates: end: 20030207
  2. DIGOXIN [Suspect]
     Dosage: 0.125 MG Q DAY PO
     Route: 048
     Dates: end: 20030207
  3. FUROSEMIDE [Suspect]
     Dosage: 40 MG Q DAY
  4. FUROSEMIDE [Suspect]
     Dosage: DF
  5. FLUINDIONE [Suspect]
     Dosage: DF PO
     Route: 048
     Dates: end: 20030207
  6. AMLODIPINE MALEATE [Concomitant]
  7. LEVOTHYROXINE SODIUM [Concomitant]
  8. NICORANDIL [Concomitant]
  9. TAMOXIFEN CITRATE [Concomitant]

REACTIONS (10)
  - ANURIA [None]
  - BRADYCARDIA [None]
  - CARDIAC DISORDER [None]
  - DEHYDRATION [None]
  - DIARRHOEA [None]
  - DRUG LEVEL INCREASED [None]
  - HYPOTENSION [None]
  - INTERNATIONAL NORMALISED RATIO INCREASED [None]
  - OVERDOSE [None]
  - RENAL FAILURE ACUTE [None]
